FAERS Safety Report 14269202 (Version 2)
Quarter: 2017Q4

REPORT INFORMATION
  Report Type: Spontaneous
  Country: NL (occurrence: NL)
  Receive Date: 20171211
  Receipt Date: 20171229
  Transmission Date: 20180321
  Serious: Yes (Other)
  Sender: FDA-Public Use
  Company Number: NL-TEVA-2017-NL-831942

PATIENT
  Age: 81 Year
  Sex: Male

DRUGS (23)
  1. VANCOMYCIN [Suspect]
     Active Substance: VANCOMYCIN
     Indication: WOUND DEHISCENCE
  2. OXYCONTIN [Concomitant]
     Active Substance: OXYCODONE HYDROCHLORIDE
     Route: 065
  3. PHYTOMENADIONE [Concomitant]
     Active Substance: PHYTONADIONE
     Route: 065
  4. FUROSEMIDE. [Concomitant]
     Active Substance: FUROSEMIDE
     Route: 065
  5. ONDANSETRON [Concomitant]
     Active Substance: ONDANSETRON
     Route: 065
  6. OXYCODONE [Concomitant]
     Active Substance: OXYCODONE
     Route: 065
  7. IPRATROPIUM [Concomitant]
     Active Substance: IPRATROPIUM
     Route: 065
  8. VANCOMYCIN [Suspect]
     Active Substance: VANCOMYCIN
     Indication: WOUND INFECTION
  9. PREDNISOLONE. [Concomitant]
     Active Substance: PREDNISOLONE
     Route: 065
  10. CEFTRIAXONE. [Concomitant]
     Active Substance: CEFTRIAXONE
     Route: 065
  11. DEXAMETHASONE. [Concomitant]
     Active Substance: DEXAMETHASONE
     Route: 065
  12. FENPROCOUMON [Concomitant]
     Active Substance: PHENPROCOUMON
     Route: 065
  13. PARACETAMOL [Concomitant]
     Active Substance: ACETAMINOPHEN
     Route: 065
  14. RIFAMPICIN [Concomitant]
     Active Substance: RIFAMPIN
     Route: 065
  15. METRONIDAZOLE. [Concomitant]
     Active Substance: METRONIDAZOLE
     Route: 065
  16. NYSTATIN. [Concomitant]
     Active Substance: NYSTATIN
     Route: 065
  17. MORPHINE [Concomitant]
     Active Substance: MORPHINE
     Route: 065
  18. TEMAZEPAM. [Concomitant]
     Active Substance: TEMAZEPAM
     Route: 065
  19. DALTEPARIN [Concomitant]
     Active Substance: DALTEPARIN
     Route: 065
  20. DROPERIDOL. [Concomitant]
     Active Substance: DROPERIDOL
     Route: 065
  21. FINASTERIDE. [Concomitant]
     Active Substance: FINASTERIDE
     Route: 065
  22. VANCOMYCIN [Suspect]
     Active Substance: VANCOMYCIN
     Indication: PNEUMONIA ASPIRATION
     Route: 065
  23. PRIMPERAN [Concomitant]
     Active Substance: METOCLOPRAMIDE HYDROCHLORIDE
     Route: 065

REACTIONS (1)
  - Linear IgA disease [Recovering/Resolving]
